FAERS Safety Report 8843887 (Version 2)
Quarter: 2012Q4

REPORT INFORMATION
  Report Type: 
  Country: US (occurrence: US)
  Receive Date: 20121016
  Receipt Date: 20121101
  Transmission Date: 20130627
  Serious: Yes (Other)
  Sender: FDA-Public Use
  Company Number: US-MYLANLABS-2012S1021046

PATIENT
  Age: 74 Year
  Sex: Female
  Weight: 63.05 kg

DRUGS (8)
  1. METOPROLOL TARTRATE TABLETS, USP [Suspect]
     Indication: HYPERTENSION
     Route: 048
     Dates: start: 20120913, end: 20120913
  2. MICROZIDE /00022001/ [Concomitant]
  3. VERELAN PM [Concomitant]
  4. CATAPRES [Concomitant]
  5. OMEGA 3 /01334101/ [Concomitant]
  6. CENTRUM SILVER [Concomitant]
  7. VITAMIN D3 [Concomitant]
  8. CALCIUM [Concomitant]

REACTIONS (3)
  - Pruritus [Recovering/Resolving]
  - Paraesthesia [Recovering/Resolving]
  - Tongue disorder [Recovering/Resolving]
